FAERS Safety Report 5294239-3 (Version None)
Quarter: 2007Q2

REPORT INFORMATION
  Report Type: 
  Country: None (occurrence: None)
  Receive Date: 20070409
  Receipt Date: 20070409
  Transmission Date: 20071010
  Serious: No
  Sender: FDA-Public Use
  Company Number: None

PATIENT
  Age: 20 Day
  Sex: Male

DRUGS (3)
  1. GEODON [Suspect]
     Indication: AUTISM
     Dosage: 20MG  1 AM, 2 1800  PO
     Route: 048
     Dates: start: 20070319, end: 20070327
  2. GEODON [Suspect]
     Indication: INTERMITTENT EXPLOSIVE DISORDER
     Dosage: 20MG  1 AM, 2 1800  PO
     Route: 048
     Dates: start: 20070319, end: 20070327
  3. GEODON [Suspect]
     Indication: DRUG DISPENSING ERROR
     Dosage: 80MG  1 AM, 2 1800  PO
     Route: 048
     Dates: start: 20070319, end: 20070327

REACTIONS (4)
  - CIRCUMSTANCE OR INFORMATION CAPABLE OF LEADING TO MEDICATION ERROR [None]
  - DRUG DISPENSING ERROR [None]
  - MEDICATION ERROR [None]
  - SEDATION [None]
